FAERS Safety Report 4440571-2 (Version None)
Quarter: 2004Q3

REPORT INFORMATION
  Report Type: 
  Country: None (occurrence: None)
  Receive Date: 20040831
  Receipt Date: 20040630
  Transmission Date: 20050211
  Serious: Yes (Other)
  Sender: FDA-Public Use
  Company Number: USA040670839

PATIENT
  Age: 59 Year
  Sex: Female
  Weight: 76 kg

DRUGS (5)
  1. SYMBYAX [Suspect]
     Indication: ANXIETY
     Dates: start: 20040618, end: 20040619
  2. AMBIEN [Concomitant]
  3. VITAMINS NOS [Concomitant]
  4. CALCIUM [Concomitant]
  5. OGEN [Concomitant]

REACTIONS (2)
  - HYPOTENSION [None]
  - SYNCOPE [None]
